FAERS Safety Report 24656712 (Version 1)
Quarter: 2024Q4

REPORT INFORMATION
  Report Type: Spontaneous
  Country: US (occurrence: US)
  Receive Date: 20241124
  Receipt Date: 20241124
  Transmission Date: 20250114
  Serious: No
  Sender: BRISTOL-MYERS SQUIBB COMPANY
  Company Number: US-BRISTOL-MYERS SQUIBB COMPANY-2024-183591

PATIENT
  Age: 65 Year
  Sex: Male
  Weight: 93.89 kg

DRUGS (2)
  1. ELIQUIS [Suspect]
     Active Substance: APIXABAN
     Indication: Atrial fibrillation
     Route: 048
     Dates: start: 2024
  2. LATANOPROST [Concomitant]
     Active Substance: LATANOPROST
     Indication: Pain

REACTIONS (1)
  - Tooth fracture [Unknown]
